FAERS Safety Report 20166556 (Version 4)
Quarter: 2022Q2

REPORT INFORMATION
  Report Type: Spontaneous
  Country: JP (occurrence: JP)
  Receive Date: 20211209
  Receipt Date: 20220412
  Transmission Date: 20220721
  Serious: Yes (Other)
  Sender: FDA-Public Use
  Company Number: JP-ONO-2021JP030991

PATIENT
  Age: 72 Year
  Sex: Male
  Weight: 49.9 kg

DRUGS (13)
  1. YERVOY [Suspect]
     Active Substance: IPILIMUMAB
     Indication: Pleural mesothelioma malignant
     Dosage: 50 MILLIGRAM, EVERY 6 WEEKS
     Route: 041
     Dates: start: 20210622
  2. YERVOY [Suspect]
     Active Substance: IPILIMUMAB
     Dosage: 50 MILLIGRAM, EVERY 6 WEEKS
     Route: 041
     Dates: start: 20211117
  3. OPDIVO [Suspect]
     Active Substance: NIVOLUMAB
     Indication: Pleural mesothelioma malignant
     Dosage: 360 MILLIGRAM, EVERY 3 WEEKS
     Route: 041
     Dates: start: 20210622
  4. OPDIVO [Suspect]
     Active Substance: NIVOLUMAB
     Dosage: 360 MILLIGRAM,EVERY 3 WEEKS
     Route: 041
     Dates: start: 20211117
  5. ISOSORBIDE MONONITRATE [Suspect]
     Active Substance: ISOSORBIDE MONONITRATE
     Indication: Pleural mesothelioma malignant
     Dosage: 30 MILLILITER, TID
     Route: 048
     Dates: start: 20211006, end: 20211026
  6. AMLODIPINE [Concomitant]
     Active Substance: AMLODIPINE BESYLATE
     Indication: Hypertension
     Dosage: 5 MILLIGRAM, BID
     Route: 048
  7. CLOPIDOGREL [Concomitant]
     Active Substance: CLOPIDOGREL BISULFATE
     Indication: Product used for unknown indication
     Dosage: 75 MILLIGRAM, QD
     Route: 048
  8. RABEPRAZOLE [Concomitant]
     Active Substance: RABEPRAZOLE
     Indication: Pleural mesothelioma malignant
     Dosage: 10 MILLIGRAM, QD
     Route: 048
  9. CILOSTAZOL [Concomitant]
     Active Substance: CILOSTAZOL
     Indication: Cerebral infarction
     Dosage: 100 MILLIGRAM, BID
     Route: 048
  10. TELMISARTAN [Concomitant]
     Active Substance: TELMISARTAN
     Indication: Hypertension
     Dosage: 40 MILLIGRAM, QD
     Route: 048
  11. CALONAL [Concomitant]
     Active Substance: ACETAMINOPHEN
     Indication: Pleural mesothelioma malignant
     Dosage: 400 MILLIGRAM, TID
     Route: 048
  12. OXYCODONE [Concomitant]
     Active Substance: OXYCODONE
     Indication: Pleural mesothelioma malignant
     Dosage: 5 MILLIGRAM, BID
     Route: 048
     Dates: start: 20210625
  13. DECADRON [Concomitant]
     Active Substance: DEXAMETHASONE
     Indication: Pleural mesothelioma malignant
     Dosage: 1 MILLIGRAM, BID
     Route: 048
     Dates: start: 20211006

REACTIONS (4)
  - Electrocardiogram ST segment elevation [Recovering/Resolving]
  - Alanine aminotransferase increased [Recovered/Resolved]
  - Amylase increased [Recovering/Resolving]
  - Aspartate aminotransferase increased [Recovered/Resolved]

NARRATIVE: CASE EVENT DATE: 20211027
